FAERS Safety Report 13666939 (Version 1)
Quarter: 2017Q2

REPORT INFORMATION
  Report Type: Spontaneous
  Country: US (occurrence: US)
  Receive Date: 20170619
  Receipt Date: 20170619
  Transmission Date: 20170830
  Serious: No
  Sender: FDA-Public Use
  Company Number: US-ROCHE-662566

PATIENT
  Age: 64 Year
  Sex: Female

DRUGS (3)
  1. INSULIN [Concomitant]
     Active Substance: INSULIN NOS
     Dosage: DRUG NAME REPORTED AS INSULIN 70/30
     Route: 065
  2. XELODA [Suspect]
     Active Substance: CAPECITABINE
     Indication: COLON CANCER
     Dosage: FOURTH OR FIFTH CYCLE
     Route: 065
  3. VERAPAMIL [Concomitant]
     Active Substance: VERAPAMIL HYDROCHLORIDE
     Dosage: DRUG NAME REPORTED AS VERAPIMIL
     Route: 065

REACTIONS (2)
  - Diarrhoea [Unknown]
  - Flatulence [Unknown]
